FAERS Safety Report 6857320-0 (Version None)
Quarter: 2010Q3

REPORT INFORMATION
  Report Type: 
  Country: None (occurrence: None)
  Receive Date: 20100719
  Receipt Date: 20100708
  Transmission Date: 20110219
  Serious: Yes (Other)
  Sender: FDA-Public Use
  Company Number: US-PFIZER INC-2010085761

PATIENT
  Sex: Female
  Weight: 44 kg

DRUGS (1)
  1. VFEND [Suspect]
     Indication: ASPERGILLOSIS
     Dosage: 200 MG, 2X/DAY
     Dates: start: 20100101, end: 20100101

REACTIONS (3)
  - OEDEMA [None]
  - PLEURAL EFFUSION [None]
  - TACHYCARDIA [None]
